FAERS Safety Report 4919047-1 (Version None)
Quarter: 2006Q1

REPORT INFORMATION
  Report Type: 
  Country: None (occurrence: None)
  Receive Date: 20060216
  Receipt Date: 20060207
  Transmission Date: 20060701
  Serious: Yes (Hospitalization, Other)
  Sender: FDA-Public Use
  Company Number: US200511003023

PATIENT
  Age: 62 Year
  Sex: Female
  Weight: 48 kg

DRUGS (22)
  1. CYMBALTA [Suspect]
     Indication: DEPRESSION
     Dosage: 30 MG, DAILY (1/D)
     Dates: start: 20050701, end: 20051101
  2. CIPRO [Concomitant]
  3. MACROBID [Concomitant]
  4. LIPITOR [Concomitant]
  5. ZOCOR [Concomitant]
  6. LACTOBACILLUS ACIDOPHILUS (LACTOBACILLUS ACIDOPHILUS) TABLET [Concomitant]
  7. VICODIN [Concomitant]
  8. ADVAIR DISKUS 100/50 [Concomitant]
  9. HEPARIN [Concomitant]
  10. ALBUTEROL [Concomitant]
  11. COREG [Concomitant]
  12. PLAVIX [Concomitant]
  13. SPIRIVA [Concomitant]
  14. DIGOXIN (DIGOXIN) AMPOULE [Concomitant]
  15. IMDUR [Concomitant]
  16. LASIX (FUROSEMIDE, FUROSEMIDE SODIUM) [Concomitant]
  17. K-DUR 10 [Concomitant]
  18. HYDRALAZINE HCL [Concomitant]
  19. PREVACID [Concomitant]
  20. ASA TABS (ACETYLSALICYLIC ACID) [Concomitant]
  21. COLACE (DOCUSATE SODIUM) [Concomitant]
  22. ZESTRIL [Concomitant]

REACTIONS (36)
  - ABDOMINAL PAIN [None]
  - ABDOMINAL PAIN UPPER [None]
  - ANOREXIA [None]
  - ANXIETY [None]
  - AORTIC ARTERIOSCLEROSIS [None]
  - ASCITES [None]
  - BLOOD ALBUMIN DECREASED [None]
  - BRADYCARDIA [None]
  - CACHEXIA [None]
  - CHOLELITHIASIS [None]
  - CLOSTRIDIUM COLITIS [None]
  - CONTUSION [None]
  - GANGRENE [None]
  - HAEMODIALYSIS [None]
  - HAEMOGLOBIN DECREASED [None]
  - HEPATITIS [None]
  - HEPATOMEGALY [None]
  - HYPOTENSION [None]
  - INFLUENZA LIKE ILLNESS [None]
  - JAUNDICE [None]
  - NAUSEA [None]
  - NEPHRITIS ALLERGIC [None]
  - NEPHRITIS INTERSTITIAL [None]
  - OEDEMA [None]
  - PETECHIAE [None]
  - PLATELET COUNT DECREASED [None]
  - PRURITUS [None]
  - RASH [None]
  - RENAL FAILURE ACUTE [None]
  - RENAL FAILURE CHRONIC [None]
  - RENAL TUBULAR NECROSIS [None]
  - SCLERAL DISORDER [None]
  - URINARY TRACT INFECTION [None]
  - VARICOSE VEIN [None]
  - WEIGHT DECREASED [None]
  - WOUND INFECTION [None]
